FAERS Safety Report 8708485 (Version 2)
Quarter: 2012Q4

REPORT INFORMATION
  Report Type: 
  Country: FR (occurrence: FR)
  Receive Date: 20120806
  Receipt Date: 20121003
  Transmission Date: 20130627
  Serious: Yes (Hospitalization)
  Sender: FDA-Public Use
  Company Number: FR-BRISTOL-MYERS SQUIBB COMPANY-16806408

PATIENT
  Age: 80 Year
  Sex: Male

DRUGS (8)
  1. COAPROVEL TABS 150MG/12.5MG [Suspect]
     Route: 048
     Dates: start: 20080212, end: 20120519
  2. ZANIDIP [Suspect]
     Indication: HYPERTENSION
     Route: 048
     Dates: start: 201009, end: 20120519
  3. ATENOLOL [Suspect]
     Indication: HYPERTENSION
     Route: 048
     Dates: start: 201009, end: 20120524
  4. SERESTA [Suspect]
     Indication: HYPERTENSION
     Route: 048
     Dates: start: 201009, end: 20120519
  5. ALFUZOSIN [Suspect]
     Indication: BENIGN PROSTATIC HYPERPLASIA
     Route: 048
     Dates: start: 201009, end: 20120519
  6. CERIS [Concomitant]
     Indication: POLLAKIURIA
     Dates: start: 201009
  7. PLAVIX [Concomitant]
  8. TAHOR [Concomitant]

REACTIONS (7)
  - Orthostatic hypotension [Recovered/Resolved]
  - Urinary retention [Recovered/Resolved]
  - Rhabdomyolysis [Recovered/Resolved]
  - Renal failure chronic [Recovered/Resolved]
  - Confusional state [Recovered/Resolved]
  - Fall [Recovered/Resolved]
  - Nephroangiosclerosis [Recovered/Resolved]
